FAERS Safety Report 8490533-3 (Version None)
Quarter: 2012Q3

REPORT INFORMATION
  Report Type: 
  Country: None (occurrence: None)
  Receive Date: 20120705
  Receipt Date: 20120628
  Transmission Date: 20120928
  Serious: Yes (Other)
  Sender: FDA-Public Use
  Company Number: JP-GILEAD-2012-0057515

PATIENT
  Sex: Female

DRUGS (3)
  1. UNKNOWN DRUG [Concomitant]
     Indication: PULMONARY HYPERTENSION
     Route: 065
  2. AMBRISENTAN [Suspect]
     Indication: PULMONARY HYPERTENSION
     Dosage: 10MG PER DAY
     Route: 048
     Dates: start: 20120104, end: 20120101
  3. FLOLAN [Suspect]
     Indication: PULMONARY HYPERTENSION
     Route: 042
     Dates: end: 20120101

REACTIONS (1)
  - ASCITES [None]
